FAERS Safety Report 25460290 (Version 2)
Quarter: 2025Q3

REPORT INFORMATION
  Report Type: Report from Study
  Country: US (occurrence: US)
  Receive Date: 20250620
  Receipt Date: 20250711
  Transmission Date: 20251021
  Serious: No
  Sender: ACADIA PHARMACEUTICALS
  Company Number: US-ACADIA PHARMACEUTICALS INC.-ACA-2025-PIM-007226

PATIENT
  Age: 80 Year
  Sex: Male

DRUGS (16)
  1. NUPLAZID [Suspect]
     Active Substance: PIMAVANSERIN TARTRATE
     Indication: Parkinson^s disease
     Dosage: 34 MILLIGRAM, QD
     Route: 048
     Dates: start: 20240416
  2. NUPLAZID [Suspect]
     Active Substance: PIMAVANSERIN TARTRATE
     Indication: Hallucination
  3. CARBIDOPA\LEVODOPA [Concomitant]
     Active Substance: CARBIDOPA\LEVODOPA
  4. RISPERDAL [Concomitant]
     Active Substance: RISPERIDONE
  5. JUBLIA [Concomitant]
     Active Substance: EFINACONAZOLE
  6. SYNTHROID [Concomitant]
     Active Substance: LEVOTHYROXINE SODIUM
  7. PRAVASTATIN [Concomitant]
     Active Substance: PRAVASTATIN
  8. ELIQUIS [Concomitant]
     Active Substance: APIXABAN
  9. DONEPEZIL [Concomitant]
     Active Substance: DONEPEZIL
  10. LOSARTAN [Concomitant]
     Active Substance: LOSARTAN
  11. VITAMIN C [Concomitant]
     Active Substance: ASCORBIC ACID
  12. DHIVY [Concomitant]
     Active Substance: CARBIDOPA\LEVODOPA
  13. SINGULAIR [Concomitant]
     Active Substance: MONTELUKAST SODIUM
  14. WIXELA INHUB [Concomitant]
     Active Substance: FLUTICASONE PROPIONATE\SALMETEROL XINAFOATE
  15. METOPROLOL SUCCINATE [Concomitant]
     Active Substance: METOPROLOL SUCCINATE
  16. FOLIC ACID [Concomitant]
     Active Substance: FOLIC ACID

REACTIONS (2)
  - Product dose omission issue [Recovered/Resolved]
  - Product dose omission issue [Recovered/Resolved]

NARRATIVE: CASE EVENT DATE: 20250609
